FAERS Safety Report 9293654 (Version 1)
Quarter: 2013Q2

REPORT INFORMATION
  Report Type: Spontaneous
  Country: US (occurrence: US)
  Receive Date: 20130516
  Receipt Date: 20130516
  Transmission Date: 20140414
  Serious: No
  Sender: FDA-Public Use
  Company Number: US-009507513-1305USA003611

PATIENT
  Age: 75 Year
  Sex: Female

DRUGS (5)
  1. NASONEX [Suspect]
     Indication: SINUS DISORDER
     Dosage: 2 SPRAYS ONCE DAILY
     Route: 045
     Dates: start: 2010
  2. NASONEX [Suspect]
     Indication: RHINITIS
  3. PREVACID [Concomitant]
     Dosage: UNK
     Dates: start: 1993
  4. BYSTOLIC [Concomitant]
  5. HYDROCHLOROTHIAZIDE [Concomitant]

REACTIONS (8)
  - Cyst drainage [Unknown]
  - Dry throat [Unknown]
  - Nasal dryness [Unknown]
  - Nasal discomfort [Unknown]
  - Oropharyngeal pain [Unknown]
  - Chest pain [Not Recovered/Not Resolved]
  - Pruritus [Unknown]
  - Cyst removal [Unknown]
